FAERS Safety Report 9153390 (Version 1)
Quarter: 2013Q1

REPORT INFORMATION
  Report Type: Spontaneous
  Country: JP (occurrence: JP)
  Receive Date: 20130311
  Receipt Date: 20130311
  Transmission Date: 20140127
  Serious: Yes (Hospitalization, Other)
  Sender: FDA-Public Use
  Company Number: JP-JNJFOC-20120611587

PATIENT
  Age: 92 Year
  Sex: Female
  Weight: 40 kg

DRUGS (3)
  1. REMINYL [Suspect]
     Indication: DEMENTIA
     Route: 048
     Dates: end: 20120613
  2. PAXIL [Concomitant]
     Indication: DEPRESSION
     Route: 048
     Dates: end: 20120612
  3. PRIMPERAN [Concomitant]
     Indication: NAUSEA
     Route: 048

REACTIONS (4)
  - Supraventricular tachycardia [Recovered/Resolved]
  - Cardiac failure acute [Recovering/Resolving]
  - Cardiomyopathy [Recovered/Resolved]
  - Nausea [Recovered/Resolved]
